FAERS Safety Report 6881420-2 (Version None)
Quarter: 2010Q3

REPORT INFORMATION
  Report Type: 
  Country: None (occurrence: None)
  Receive Date: 20100728
  Receipt Date: 20100728
  Transmission Date: 20110219
  Serious: Yes (Hospitalization)
  Sender: FDA-Public Use
  Company Number: None

PATIENT
  Age: 71 Year
  Sex: Male
  Weight: 102 kg

DRUGS (8)
  1. SEROQUEL [Suspect]
     Indication: BIPOLAR DISORDER
     Dosage: 150MG PO QHS
     Route: 048
  2. SEROQUEL [Suspect]
     Indication: DEMENTIA
     Dosage: 150MG PO QHS
     Route: 048
  3. DIVALPROEX SODIUM [Concomitant]
  4. RIVASTIGMINE TARTRATE [Concomitant]
  5. NIACIN [Concomitant]
  6. LORATADINE [Concomitant]
  7. BUSPIRONE [Concomitant]
  8. SIMVASTATIN [Concomitant]

REACTIONS (5)
  - AGGRESSION [None]
  - AGITATION [None]
  - AMMONIA INCREASED [None]
  - BRONCHITIS [None]
  - DIZZINESS [None]
